FAERS Safety Report 4317763-6 (Version None)
Quarter: 2004Q1

REPORT INFORMATION
  Report Type: 
  Country: None (occurrence: None)
  Receive Date: 20040315
  Receipt Date: 20040307
  Transmission Date: 20041129
  Serious: Yes (Death, Other)
  Sender: FDA-Public Use
  Company Number: WAES 0403USA00719

PATIENT

DRUGS (1)
  1. ZETIA [Suspect]
     Route: 048

REACTIONS (2)
  - DEATH [None]
  - HEPATIC FAILURE [None]
